FAERS Safety Report 9326813 (Version 1)
Quarter: 2013Q2

REPORT INFORMATION
  Report Type: Spontaneous
  Country: GB (occurrence: None)
  Receive Date: 20130522
  Receipt Date: 20130522
  Transmission Date: 20140414
  Serious: Yes (Other)
  Sender: FDA-Public Use
  Company Number: 2013036074

PATIENT
  Age: 57 Year
  Sex: Female

DRUGS (1)
  1. PRIVIGEN (IMMUNE GLOBULIN INTRAVENOUS (HUMAN) 10% LIQUID) [Suspect]
     Indication: MONONEUROPATHY MULTIPLEX
     Dosage: 1X/2 WEEKS
     Route: 042
     Dates: start: 20130409, end: 20130409

REACTIONS (2)
  - Urinary tract infection [None]
  - Pain in extremity [None]
